FAERS Safety Report 4452389-5 (Version None)
Quarter: 2004Q3

REPORT INFORMATION
  Report Type: 
  Country: None (occurrence: None)
  Receive Date: 20040917
  Receipt Date: 20040908
  Transmission Date: 20050211
  Serious: Yes (Death, Hospitalization)
  Sender: FDA-Public Use
  Company Number: PHBS2004CH11929

PATIENT
  Age: 63 Year
  Sex: Female

DRUGS (2)
  1. DEFEROXAMINE [Suspect]
     Indication: BLOOD IRON INCREASED
  2. PREDNISONE [Concomitant]
     Dosage: 15 MG/DAY

REACTIONS (15)
  - ATRIOVENTRICULAR BLOCK COMPLETE [None]
  - BREATH SOUNDS DECREASED [None]
  - CARDIAC MURMUR [None]
  - CEREBRAL FUNGAL INFECTION [None]
  - DERMATITIS HERPETIFORMIS [None]
  - FUNGAL SEPSIS [None]
  - FUNGAL SKIN INFECTION [None]
  - GASTROINTESTINAL FUNGAL INFECTION [None]
  - LUMBAR PUNCTURE ABNORMAL [None]
  - MENINGISM [None]
  - MUCORMYCOSIS [None]
  - PAIN OF SKIN [None]
  - PYREXIA [None]
  - RESPIRATORY TRACT INFECTION FUNGAL [None]
  - SKIN LESION [None]
